FAERS Safety Report 21083716 (Version 1)
Quarter: 2022Q3

REPORT INFORMATION
  Report Type: Spontaneous
  Country: US (occurrence: US)
  Receive Date: 20220714
  Receipt Date: 20220714
  Transmission Date: 20221027
  Serious: No
  Sender: FDA-Public Use
  Company Number: US-JAZZ-2022-US-012202

PATIENT

DRUGS (4)
  1. EPIDIOLEX [Suspect]
     Active Substance: CANNABIDIOL
     Indication: Focal dyscognitive seizures
     Dosage: 5 MILLILITER
     Route: 048
     Dates: start: 20220315
  2. CLOBAZAM [Suspect]
     Active Substance: CLOBAZAM
     Indication: Product used for unknown indication
  3. ZONISAMIDE [Concomitant]
     Active Substance: ZONISAMIDE
     Indication: Product used for unknown indication
  4. LAMICTAL [Concomitant]
     Active Substance: LAMOTRIGINE
     Indication: Product used for unknown indication

REACTIONS (2)
  - Focal dyscognitive seizures [Unknown]
  - Off label use [Unknown]
